FAERS Safety Report 25857161 (Version 9)
Quarter: 2025Q4

REPORT INFORMATION
  Report Type: Report from Study
  Country: JP (occurrence: JP)
  Receive Date: 20250929
  Receipt Date: 20251230
  Transmission Date: 20260117
  Serious: Yes (Other)
  Sender: BridgeBio Pharma
  Company Number: JP-BRIDGEBIO-25JP001404

PATIENT

DRUGS (4)
  1. ACORAMIDIS [Suspect]
     Active Substance: ACORAMIDIS
     Indication: Cardiac amyloidosis
     Dosage: 800 MILLIGRAM, BID
     Route: 048
     Dates: start: 20250618
  2. ACORAMIDIS [Suspect]
     Active Substance: ACORAMIDIS
     Dosage: 1600 MILLIGRAM, BID
     Route: 048
     Dates: start: 20250618
  3. AZILSARTAN KAMEDOXOMIL [Concomitant]
     Active Substance: AZILSARTAN KAMEDOXOMIL
     Indication: Product used for unknown indication
  4. VONOPRAZAN FUMARATE [Concomitant]
     Active Substance: VONOPRAZAN FUMARATE
     Indication: Product used for unknown indication

REACTIONS (13)
  - Choking [Recovered/Resolved]
  - Renal impairment [Recovering/Resolving]
  - Cachexia [Not Recovered/Not Resolved]
  - Lip swelling [Recovered/Resolved]
  - Eye swelling [Recovered/Resolved]
  - Nasopharyngitis [Recovering/Resolving]
  - Fatigue [Recovering/Resolving]
  - Ocular hyperaemia [Recovered/Resolved]
  - Product dose omission in error [Recovered/Resolved]
  - Dehydration [Recovering/Resolving]
  - Dyspnoea exertional [Not Recovered/Not Resolved]
  - Arthralgia [Recovering/Resolving]
  - Treatment noncompliance [Recovering/Resolving]

NARRATIVE: CASE EVENT DATE: 20250615
